FAERS Safety Report 8010673-2 (Version None)
Quarter: 2011Q4

REPORT INFORMATION
  Report Type: 
  Country: None (occurrence: None)
  Receive Date: 20111123
  Receipt Date: 20110811
  Transmission Date: 20120403
  Serious: No
  Sender: FDA-Public Use
  Company Number: 333596

PATIENT
  Sex: Female

DRUGS (1)
  1. VICTOZA [Suspect]
     Indication: PRODUCT USED FOR UNKNOWN INDICATION
     Dosage: , SUBCUTANEOUS
     Route: 058

REACTIONS (5)
  - HUNGER [None]
  - INCREASED APPETITE [None]
  - DIARRHOEA [None]
  - NAUSEA [None]
  - HEADACHE [None]
